FAERS Safety Report 18384149 (Version 2)
Quarter: 2021Q1

REPORT INFORMATION
  Report Type: Spontaneous
  Country: US (occurrence: US)
  Receive Date: 20201014
  Receipt Date: 20210112
  Transmission Date: 20210419
  Serious: Yes (Other)
  Sender: FDA-Public Use
  Company Number: US-INTRA-CELLULAR THERAPIES, INC.-2020ICT00128

PATIENT
  Age: 32 Year
  Sex: Female
  Weight: 86.17 kg

DRUGS (5)
  1. CAPLYTA [Suspect]
     Active Substance: LUMATEPERONE
     Indication: SCHIZOPHRENIA
     Dosage: UNK
     Dates: start: 20200824, end: 2020
  2. LYRICA [Concomitant]
     Active Substance: PREGABALIN
  3. CAPLYTA [Suspect]
     Active Substance: LUMATEPERONE
     Indication: HALLUCINATION, AUDITORY
  4. VYVANSE [Concomitant]
     Active Substance: LISDEXAMFETAMINE DIMESYLATE
  5. XANAX XR [Concomitant]
     Active Substance: ALPRAZOLAM

REACTIONS (4)
  - Seizure [Recovered/Resolved]
  - Irritability [Recovered/Resolved]
  - Mood swings [Recovered/Resolved]
  - Postictal state [Unknown]

NARRATIVE: CASE EVENT DATE: 2020
